FAERS Safety Report 10222553 (Version 1)
Quarter: 2014Q2

REPORT INFORMATION
  Report Type: Spontaneous
  Country: DE (occurrence: DE)
  Receive Date: 20140606
  Receipt Date: 20140606
  Transmission Date: 20141212
  Serious: Yes (Congenital Anomaly)
  Sender: FDA-Public Use
  Company Number: DE-WATSON-2013-25106

PATIENT
  Sex: Female
  Weight: 3.8 kg

DRUGS (4)
  1. LAMOTRIGINE (UNKNOWN) [Suspect]
     Indication: EPILEPSY
     Dosage: 350 MG, DAILY
     Route: 064
     Dates: start: 20081009, end: 20090726
  2. VOMEX A [Suspect]
     Indication: HYPEREMESIS GRAVIDARUM
     Dosage: UNK UNK, UNKNOWN
     Route: 064
     Dates: start: 20081201, end: 20081231
  3. ZOFRAN [Suspect]
     Indication: HYPEREMESIS GRAVIDARUM
     Dosage: UNK UNK, UNKNOWN
     Route: 064
  4. FOLSAURE [Concomitant]
     Indication: PROPHYLAXIS OF NEURAL TUBE DEFECT
     Route: 064
     Dates: start: 20081015

REACTIONS (2)
  - Tethered cord syndrome [Recovered/Resolved with Sequelae]
  - Haemangioma congenital [Unknown]
